FAERS Safety Report 8312219-8 (Version None)
Quarter: 2012Q2

REPORT INFORMATION
  Report Type: 
  Country: None (occurrence: None)
  Receive Date: 20120425
  Receipt Date: 20120410
  Transmission Date: 20120825
  Serious: Yes (Other)
  Sender: FDA-Public Use
  Company Number: CHPA2012US009105

PATIENT
  Sex: Female

DRUGS (4)
  1. VICKS                                   /NET/ [Concomitant]
     Indication: DYSPNOEA
     Dosage: UNK, UNK
     Route: 045
  2. PHENYLEPHRINE HCL [Suspect]
     Indication: DYSPNOEA
     Dosage: 1 BOTTLE PER 1-3 WEEKS
     Route: 045
  3. SODIUM CHLORIDE [Concomitant]
     Indication: DYSPNOEA
     Dosage: UNK, UNK
     Route: 045
  4. NASAL PREPARATIONS [Concomitant]
     Route: 045

REACTIONS (5)
  - WRONG TECHNIQUE IN DRUG USAGE PROCESS [None]
  - UPPER RESPIRATORY TRACT INFECTION [None]
  - THERAPEUTIC RESPONSE UNEXPECTED [None]
  - OFF LABEL USE [None]
  - INCORRECT DRUG ADMINISTRATION DURATION [None]
